FAERS Safety Report 9715581 (Version 1)
Quarter: 2013Q4

REPORT INFORMATION
  Report Type: Spontaneous
  Country: BR (occurrence: BR)
  Receive Date: 20131127
  Receipt Date: 20131127
  Transmission Date: 20140711
  Serious: Yes (Other)
  Sender: FDA-Public Use
  Company Number: BR-AMGEN-BRASP2013083312

PATIENT
  Age: 42 Year
  Sex: Female
  Weight: 83 kg

DRUGS (3)
  1. ENBREL [Suspect]
     Indication: RHEUMATOID ARTHRITIS
     Dosage: 25 MG, 2X/WEEK
     Route: 065
     Dates: start: 201009
  2. METHOTREXATE [Concomitant]
     Dosage: 120 MG (6 TABLETS OF 20MG), ONCE WEEKLY
     Route: 048
  3. ARCOXIA [Concomitant]
     Dosage: 90 MG (ONE TABLET), 1X/DAY, IF NEEDED

REACTIONS (1)
  - Bone disorder [Unknown]
